FAERS Safety Report 5950730-5 (Version None)
Quarter: 2008Q4

REPORT INFORMATION
  Report Type: 
  Country: None (occurrence: None)
  Receive Date: 20081112
  Receipt Date: 20081104
  Transmission Date: 20090506
  Serious: No
  Sender: FDA-Public Use
  Company Number: US-B.I. PHARMACEUTICALS,INC./RIDGEFIELD-2008-BP-15231BP

PATIENT
  Sex: Female
  Weight: 53 kg

DRUGS (6)
  1. SPIRIVA [Suspect]
     Indication: CHRONIC OBSTRUCTIVE PULMONARY DISEASE
     Dosage: 18MCG
     Route: 055
     Dates: start: 20040101
  2. ALBUTEROL [Concomitant]
     Indication: CHRONIC OBSTRUCTIVE PULMONARY DISEASE
     Route: 055
  3. TRENTAL [Concomitant]
     Indication: CARDIOVASCULAR DISORDER
  4. FOSAMAX [Concomitant]
  5. AMITRIPTYLINE HCL [Concomitant]
     Dosage: 50MG
  6. ALBUTEROL HAND INHALER [Concomitant]

REACTIONS (1)
  - DYSPNOEA [None]
